FAERS Safety Report 11743503 (Version 1)
Quarter: 2015Q4

REPORT INFORMATION
  Report Type: Spontaneous
  Country: HR (occurrence: HR)
  Receive Date: 20151116
  Receipt Date: 20151116
  Transmission Date: 20160304
  Serious: Yes (Hospitalization)
  Sender: FDA-Public Use
  Company Number: HR-TEVA-607199ISR

PATIENT
  Age: 53 Year
  Sex: Female
  Weight: 73 kg

DRUGS (5)
  1. CISPLATIN PLIVA [Suspect]
     Active Substance: CISPLATIN
     Indication: ADENOCARCINOMA OF COLON
     Route: 065
     Dates: start: 20151010, end: 20151010
  2. SYNOPEN [Concomitant]
     Dosage: AMPOULES
     Route: 042
     Dates: start: 20151010, end: 20151010
  3. DEXAMETHASON KRKA [Concomitant]
     Active Substance: DEXAMETHASONE
     Dosage: 4 MILLIGRAM DAILY; AMPOULES
     Route: 042
  4. DOCETAXEL. [Suspect]
     Active Substance: DOCETAXEL
     Indication: ADENOCARCINOMA OF COLON
     Route: 048
     Dates: start: 20151010, end: 20151010
  5. GRANISETRON B.BRAUN 1 MG / ML CONCENTRATE FOR SOLUTION FOR INJECTION O [Concomitant]
     Route: 042
     Dates: start: 20151010, end: 20151010

REACTIONS (2)
  - Pain in extremity [Recovered/Resolved]
  - Paraesthesia [Recovered/Resolved]

NARRATIVE: CASE EVENT DATE: 20151012
